FAERS Safety Report 21156086 (Version 1)
Quarter: 2022Q3

REPORT INFORMATION
  Report Type: Spontaneous
  Country: QA (occurrence: QA)
  Receive Date: 20220801
  Receipt Date: 20220801
  Transmission Date: 20221027
  Serious: Yes (Hospitalization)
  Sender: FDA-Public Use
  Company Number: QA-JUBILANT CADISTA PHARMACEUTICALS-2022JUB00204

PATIENT
  Age: 12 Year
  Sex: Male

DRUGS (3)
  1. MONTELUKAST SODIUM [Suspect]
     Active Substance: MONTELUKAST SODIUM
     Indication: Asthma
     Dosage: UNK
     Route: 065
  2. UNSPECIFIED INHALED CORTICOSTEROIDS [Concomitant]
     Indication: Asthma
     Route: 065
  3. UNSPECIFIED INTRANASAL STEROIDS [Concomitant]
     Indication: Rhinitis allergic
     Route: 065

REACTIONS (1)
  - Eosinophilic granulomatosis with polyangiitis [Recovering/Resolving]
